FAERS Safety Report 12530477 (Version 1)
Quarter: 2016Q3

REPORT INFORMATION
  Report Type: Spontaneous
  Country: None (occurrence: None)
  Receive Date: 20160705
  Receipt Date: 20160705
  Transmission Date: 20161109
  Serious: No
  Sender: FDA-Public Use
  Company Number: None

PATIENT
  Sex: Female

DRUGS (1)
  1. COSVATE-G CREAM [Suspect]
     Active Substance: CLOBETASOL\GENTAMICIN
     Indication: ACNE

REACTIONS (1)
  - Acne [None]

NARRATIVE: CASE EVENT DATE: 20160204
